FAERS Safety Report 22347867 (Version 1)
Quarter: 2023Q2

REPORT INFORMATION
  Report Type: Other
  Country: PA (occurrence: None)
  Receive Date: 20230522
  Receipt Date: 20230522
  Transmission Date: 20230722
  Serious: Yes (Hospitalization)
  Sender: FDA-Public Use
  Company Number: PA-ROCHE-3350169

PATIENT
  Age: 39 Year
  Sex: Female
  Weight: 45.4 kg

DRUGS (18)
  1. RITUXIMAB [Suspect]
     Active Substance: RITUXIMAB
     Indication: Cutaneous vasculitis
     Dosage: 2 INFUSIONS 1 G SEPARATED BY A PERIOD OF 2 WEEKS FIRST CYCLE
     Route: 042
     Dates: start: 202009
  2. RITUXIMAB [Suspect]
     Active Substance: RITUXIMAB
     Dosage: 2 INFUSIONS 1 G SEPARATED BY A PERIOD OF 2 WEEKS SECOND CYCLE
     Route: 042
  3. MYCOPHENOLATE MOFETIL [Suspect]
     Active Substance: MYCOPHENOLATE MOFETIL
     Indication: Neuritis
     Route: 065
     Dates: start: 2018
  4. MYCOPHENOLATE MOFETIL [Suspect]
     Active Substance: MYCOPHENOLATE MOFETIL
     Indication: Cutaneous vasculitis
     Route: 065
     Dates: start: 2018
  5. MYCOPHENOLATE MOFETIL [Suspect]
     Active Substance: MYCOPHENOLATE MOFETIL
     Route: 065
     Dates: start: 202009
  6. MYCOPHENOLATE MOFETIL [Suspect]
     Active Substance: MYCOPHENOLATE MOFETIL
     Route: 065
     Dates: start: 202103
  7. PREDNISONE [Suspect]
     Active Substance: PREDNISONE
     Indication: Systemic lupus erythematosus
     Route: 065
  8. PREDNISONE [Suspect]
     Active Substance: PREDNISONE
     Indication: Cutaneous vasculitis
     Route: 065
     Dates: start: 2020
  9. PREDNISONE [Suspect]
     Active Substance: PREDNISONE
     Route: 065
  10. HYDROXYCHLOROQUINE [Suspect]
     Active Substance: HYDROXYCHLOROQUINE
     Indication: Systemic lupus erythematosus
     Route: 065
  11. COLCHICINE [Suspect]
     Active Substance: COLCHICINE
     Indication: Cutaneous vasculitis
     Route: 065
     Dates: start: 2020
  12. DAPSONE [Suspect]
     Active Substance: DAPSONE
     Indication: Cutaneous vasculitis
     Route: 065
     Dates: start: 2020
  13. CYCLOPHOSPHAMIDE [Suspect]
     Active Substance: CYCLOPHOSPHAMIDE
     Indication: Cutaneous vasculitis
     Dosage: COMPLETING 6 DOSES
     Route: 042
     Dates: start: 202103
  14. AZATHIOPRINE [Suspect]
     Active Substance: AZATHIOPRINE
     Indication: Urticarial vasculitis
     Route: 065
  15. CYCLOSPORINE [Suspect]
     Active Substance: CYCLOSPORINE
     Indication: Urticarial vasculitis
     Route: 065
  16. METHOTREXATE [Suspect]
     Active Substance: METHOTREXATE
     Indication: Urticarial vasculitis
     Route: 065
  17. IRBESARTAN [Concomitant]
     Active Substance: IRBESARTAN
     Indication: Hypertension
  18. ATENOLOL [Concomitant]
     Active Substance: ATENOLOL
     Indication: Hypertension

REACTIONS (3)
  - COVID-19 [Recovered/Resolved]
  - Pneumonia [Unknown]
  - Off label use [Unknown]
